FAERS Safety Report 6668418-4 (Version None)
Quarter: 2010Q2

REPORT INFORMATION
  Report Type: 
  Country: None (occurrence: None)
  Receive Date: 20100406
  Receipt Date: 20100324
  Transmission Date: 20101027
  Serious: Yes (Hospitalization)
  Sender: FDA-Public Use
  Company Number: PHHY2010GB13268

PATIENT
  Sex: Female

DRUGS (3)
  1. CLOZARIL [Suspect]
     Indication: SCHIZOPHRENIA
     Dosage: 450 MG
     Dates: start: 19910704
  2. AMISULPRIDE [Concomitant]
  3. VALPROIC ACID [Concomitant]

REACTIONS (5)
  - CEREBROVASCULAR ACCIDENT [None]
  - MENTAL DISORDER [None]
  - PARANOIA [None]
  - PARKINSONISM [None]
  - SALIVARY HYPERSECRETION [None]
